FAERS Safety Report 8856271 (Version 1)
Quarter: 2012Q4

REPORT INFORMATION
  Report Type: 
  Country: US (occurrence: US)
  Receive Date: 20121023
  Receipt Date: 20121023
  Transmission Date: 20130627
  Serious: No
  Sender: FDA-Public Use
  Company Number: US-AMGEN-USASP2012057826

PATIENT
  Age: 63 Year
  Sex: Male
  Weight: 122.45 kg

DRUGS (8)
  1. ENBREL [Suspect]
     Indication: PRODUCT USED FOR UNKNOWN INDICATION
     Dosage: 50 mg, qwk
     Route: 058
  2. STELARA [Concomitant]
     Dosage: 45 mg/0.5
  3. MOTRIN [Concomitant]
     Dosage: 800 mg, UNK
  4. ASPIRIN BUFFERED [Concomitant]
     Dosage: 325 mg, UNK
  5. VYTORIN [Concomitant]
     Dosage: 10-10 mg
  6. LISINOPRIL [Concomitant]
     Dosage: 10 mg, UNK
  7. METOPROLOL [Concomitant]
     Dosage: 25 mg, UNK
  8. MULTIVITAMINS [Concomitant]

REACTIONS (1)
  - Lupus-like syndrome [Unknown]
